FAERS Safety Report 8966491 (Version 1)
Quarter: 2012Q4

REPORT INFORMATION
  Report Type: 
  Country: US (occurrence: US)
  Receive Date: 20121217
  Receipt Date: 20121217
  Transmission Date: 20130627
  Serious: No
  Sender: FDA-Public Use
  Company Number: US-BAYER-2012-126955

PATIENT
  Sex: Female
  Weight: 61.68 kg

DRUGS (3)
  1. BETASERON [Suspect]
     Dosage: 0.25 mg, QOD
     Route: 058
  2. MULTIVITAMIN [Concomitant]
  3. TYLENOL [PARACETAMOL] [Concomitant]
     Dosage: 500 mg, UNK

REACTIONS (2)
  - Peripheral coldness [Unknown]
  - Hypoaesthesia [Unknown]
